FAERS Safety Report 6745152-3 (Version None)
Quarter: 2010Q2

REPORT INFORMATION
  Report Type: 
  Country: None (occurrence: None)
  Receive Date: 20100526
  Receipt Date: 20100517
  Transmission Date: 20101027
  Serious: Yes (Hospitalization)
  Sender: FDA-Public Use
  Company Number: 012089

PATIENT
  Age: 80 Year
  Sex: Female

DRUGS (6)
  1. LEVETIRACETAM [Suspect]
     Indication: GRAND MAL CONVULSION
     Dosage: 1000 MG BID, TITRATED DONWARD OVER 24 DAYS; DISCONTINUED
  2. AMIODARONE HYDROCHLORIDE [Suspect]
     Indication: ATRIAL FIBRILLATION
     Dosage: 200 MG QD ORAL
     Route: 048
  3. AMLODIPINE [Concomitant]
  4. TELMISARTAN [Concomitant]
  5. LEVOTHYROXINE SODIUM [Concomitant]
  6. SERTRALINE HCL [Concomitant]

REACTIONS (12)
  - ATRIAL FIBRILLATION [None]
  - BLOOD THYROID STIMULATING HORMONE DECREASED [None]
  - COGNITIVE DISORDER [None]
  - CONFUSIONAL STATE [None]
  - DELIRIUM [None]
  - DEPRESSED LEVEL OF CONSCIOUSNESS [None]
  - DISTURBANCE IN ATTENTION [None]
  - IMPAIRED SELF-CARE [None]
  - MENTAL STATUS CHANGES [None]
  - MINI MENTAL STATUS EXAMINATION ABNORMAL [None]
  - PSYCHOTIC DISORDER [None]
  - THYROXINE FREE ABNORMAL [None]
